FAERS Safety Report 8756678 (Version 2)
Quarter: 2012Q4

REPORT INFORMATION
  Report Type: 
  Country: DK (occurrence: None)
  Receive Date: 20120814
  Receipt Date: 20121001
  Transmission Date: 20130627
  Serious: Yes (Disabling)
  Sender: FDA-Public Use
  Company Number: 2012MA009693

PATIENT
  Age: 56 Year
  Sex: Female

DRUGS (3)
  1. INDAPAMIDE [Suspect]
     Indication: DRUG USE FOR UNKNOWN INDICATION
     Dates: start: 20120416
  2. CLOTRIMAZOLE [Concomitant]
  3. METRONIDAZOLE [Concomitant]

REACTIONS (1)
  - Deafness [None]
